FAERS Safety Report 17521446 (Version 1)
Quarter: 2020Q1

REPORT INFORMATION
  Report Type: Spontaneous
  Country: US (occurrence: US)
  Receive Date: 20200310
  Receipt Date: 20200310
  Transmission Date: 20200409
  Serious: Yes (Disabling)
  Sender: FDA-Public Use
  Company Number: None

PATIENT
  Age: 6 Year
  Sex: Male
  Weight: 18 kg

DRUGS (5)
  1. SINGULAIR [Suspect]
     Active Substance: MONTELUKAST SODIUM
     Indication: ASTHMA
     Dosage: ?          QUANTITY:1 TABLET(S);?
     Route: 048
  2. INTUNIV [Concomitant]
     Active Substance: GUANFACINE HYDROCHLORIDE
  3. PRESCRIPTION NASAL SPRAY [Concomitant]
  4. FLOVENT [Concomitant]
     Active Substance: FLUTICASONE PROPIONATE
  5. RISPERIDONE. [Concomitant]
     Active Substance: RISPERIDONE

REACTIONS (6)
  - Aggression [None]
  - Anxiety [None]
  - Disturbance in attention [None]
  - Obsessive-compulsive symptom [None]
  - Dysphemia [None]
  - Depression [None]

NARRATIVE: CASE EVENT DATE: 20160801
